FAERS Safety Report 7604754-2 (Version None)
Quarter: 2011Q3

REPORT INFORMATION
  Report Type: 
  Country: None (occurrence: None)
  Receive Date: 20110712
  Receipt Date: 20110705
  Transmission Date: 20111222
  Serious: Yes (Hospitalization)
  Sender: FDA-Public Use
  Company Number: PHHY2011US57509

PATIENT
  Sex: Female

DRUGS (1)
  1. GILENYA [Suspect]
     Indication: MULTIPLE SCLEROSIS
     Dosage: 0.5 MG, DAILY
     Route: 048
     Dates: start: 20110609, end: 20110630

REACTIONS (5)
  - PAIN [None]
  - PYREXIA [None]
  - MUSCULOSKELETAL PAIN [None]
  - HEADACHE [None]
  - NECK PAIN [None]
